FAERS Safety Report 19637289 (Version 2)
Quarter: 2021Q4

REPORT INFORMATION
  Report Type: Spontaneous
  Country: US (occurrence: None)
  Receive Date: 20210730
  Receipt Date: 20211216
  Transmission Date: 20220303
  Serious: Yes (Other)
  Sender: FDA-Public Use
  Company Number: 2021A645931

PATIENT
  Age: 19101 Day
  Sex: Male
  Weight: 79.4 kg

DRUGS (24)
  1. NEXIUM [Suspect]
     Active Substance: ESOMEPRAZOLE MAGNESIUM
     Indication: Gastrooesophageal reflux disease
     Route: 048
     Dates: start: 1999, end: 2019
  2. OXYCODONE [Concomitant]
     Active Substance: OXYCODONE
     Indication: Abdominal pain upper
     Dates: start: 2008, end: 2012
  3. NADOLOL [Concomitant]
     Active Substance: NADOLOL
     Indication: Blood pressure abnormal
     Dates: start: 2016
  4. LISINOPRIL [Concomitant]
     Active Substance: LISINOPRIL
     Indication: Blood pressure abnormal
     Dates: start: 2009
  5. NIFEDIPINE [Concomitant]
     Active Substance: NIFEDIPINE
     Indication: Blood pressure abnormal
     Dates: start: 2011
  6. SIMVASTATIN [Concomitant]
     Active Substance: SIMVASTATIN
     Indication: Blood cholesterol
     Dates: start: 2013
  7. METFORMIN [Concomitant]
     Active Substance: METFORMIN HYDROCHLORIDE
     Indication: Diabetes mellitus
     Dates: start: 2021
  8. BUPROPION [Concomitant]
     Active Substance: BUPROPION
     Indication: Antidepressant therapy
     Dates: start: 2018, end: 2020
  9. UNSPECIFIED INGREDIENT [Concomitant]
     Active Substance: UNSPECIFIED INGREDIENT
     Indication: Infection
  10. SYMBICORT [Concomitant]
     Active Substance: BUDESONIDE\FORMOTEROL FUMARATE DIHYDRATE
     Indication: Dyspnoea
     Dates: start: 2016
  11. CYANOCOBALAMIN [Concomitant]
     Active Substance: CYANOCOBALAMIN
     Indication: Vitamin B12 deficiency
     Dates: start: 2008
  12. ZYRTEC [Concomitant]
     Active Substance: CETIRIZINE HYDROCHLORIDE
     Indication: Hypersensitivity
  13. ALBUTEROL [Concomitant]
     Active Substance: ALBUTEROL
  14. VITAMIN C [Concomitant]
     Active Substance: ASCORBIC ACID
  15. WELLBUTRIN [Concomitant]
     Active Substance: BUPROPION HYDROCHLORIDE
  16. FLUTICASONE [Concomitant]
     Active Substance: FLUTICASONE
  17. VITAMINS [Concomitant]
     Active Substance: VITAMINS
  18. CARDURA [Concomitant]
     Active Substance: DOXAZOSIN MESYLATE
  19. FISH OIL [Concomitant]
     Active Substance: FISH OIL
  20. LEVOFLOXACIN [Concomitant]
     Active Substance: LEVOFLOXACIN
  21. FLONASE [Concomitant]
     Active Substance: FLUTICASONE PROPIONATE
  22. TRAMADOL [Concomitant]
     Active Substance: TRAMADOL
  23. DOXAZOSIN [Concomitant]
     Active Substance: DOXAZOSIN MESYLATE
  24. FEXOFENADINE [Concomitant]
     Active Substance: FEXOFENADINE HYDROCHLORIDE

REACTIONS (2)
  - Gastric cancer [Not Recovered/Not Resolved]
  - Rebound acid hypersecretion [Unknown]

NARRATIVE: CASE EVENT DATE: 20080525
